FAERS Safety Report 16221486 (Version 1)
Quarter: 2019Q2

REPORT INFORMATION
  Report Type: Spontaneous
  Country: US (occurrence: US)
  Receive Date: 20190422
  Receipt Date: 20190422
  Transmission Date: 20190711
  Serious: No
  Sender: FDA-Public Use
  Company Number: US-ASTRAZENECA-2019SE59789

PATIENT
  Age: 74 Year

DRUGS (2)
  1. PRILOSEC OTC [Suspect]
     Active Substance: OMEPRAZOLE MAGNESIUM
     Indication: DYSPEPSIA
     Dosage: 1 TABLET, DAILY
     Route: 048
     Dates: start: 20170402
  2. PRILOSEC OTC [Suspect]
     Active Substance: OMEPRAZOLE MAGNESIUM
     Indication: DYSPEPSIA
     Dosage: 1 TABLET, DAILY
     Route: 048
     Dates: start: 2015, end: 201704

REACTIONS (4)
  - Dysgeusia [Recovered/Resolved]
  - Incorrect product administration duration [Unknown]
  - Off label use [Unknown]
  - Product taste abnormal [Unknown]
